APPROVED DRUG PRODUCT: SILDENAFIL CITRATE
Active Ingredient: SILDENAFIL CITRATE
Strength: EQ 20MG BASE
Dosage Form/Route: TABLET;ORAL
Application: A203623 | Product #001 | TE Code: AB
Applicant: HETERO LABS LTD UNIT V
Approved: Nov 26, 2014 | RLD: No | RS: No | Type: RX